FAERS Safety Report 21793686 (Version 1)
Quarter: 2022Q4

REPORT INFORMATION
  Report Type: Spontaneous
  Country: US (occurrence: None)
  Receive Date: 20221228
  Receipt Date: 20221228
  Transmission Date: 20230113
  Serious: Yes (Other)
  Sender: FDA-Public Use
  Company Number: None

PATIENT
  Age: 39 Year
  Sex: Male
  Weight: 70.2 kg

DRUGS (1)
  1. HERBALS\MITRAGYNINE [Suspect]
     Active Substance: HERBALS\MITRAGYNINE
     Dates: start: 20180509, end: 20181016

REACTIONS (10)
  - Withdrawal syndrome [None]
  - Irritability [None]
  - Mood altered [None]
  - Diarrhoea [None]
  - Panic attack [None]
  - Confusional state [None]
  - Feeling abnormal [None]
  - Asthenia [None]
  - Anhedonia [None]
  - Nausea [None]

NARRATIVE: CASE EVENT DATE: 20181015
